FAERS Safety Report 4488019-6 (Version None)
Quarter: 2004Q4

REPORT INFORMATION
  Report Type: 
  Country: None (occurrence: None)
  Receive Date: 20041028
  Receipt Date: 20041020
  Transmission Date: 20050328
  Serious: Yes (Hospitalization)
  Sender: FDA-Public Use
  Company Number: US-JNJFOC-20041006477

PATIENT
  Sex: Female

DRUGS (6)
  1. DURAGESIC [Suspect]
     Route: 062
  2. DURAGESIC [Suspect]
     Route: 062
  3. ATENOLOL [Concomitant]
     Route: 049
  4. LOTREL [Concomitant]
     Route: 049
  5. LOTREL [Concomitant]
     Route: 049
  6. XALANTAN [Concomitant]
     Indication: GLAUCOMA
     Route: 047

REACTIONS (12)
  - APPLICATION SITE DERMATITIS [None]
  - APPLICATION SITE SCAR [None]
  - ASTHENIA [None]
  - CONVULSION [None]
  - DIARRHOEA [None]
  - HALLUCINATION [None]
  - HYPERHIDROSIS [None]
  - MEDICATION ERROR [None]
  - PRURITUS GENERALISED [None]
  - TREATMENT NONCOMPLIANCE [None]
  - TREMOR [None]
  - VOMITING [None]
